FAERS Safety Report 19328893 (Version 1)
Quarter: 2021Q2

REPORT INFORMATION
  Report Type: Spontaneous
  Country: US (occurrence: US)
  Receive Date: 20210528
  Receipt Date: 20210528
  Transmission Date: 20210717
  Serious: Yes (Other)
  Sender: FDA-Public Use
  Company Number: US-AMGEN-USASP2021079050

PATIENT

DRUGS (1)
  1. INFLIXIMAB [Suspect]
     Active Substance: INFLIXIMAB
     Indication: CROHN^S DISEASE
     Dosage: UNK MILLIGRAM/KILOGRAM
     Route: 065

REACTIONS (5)
  - Postoperative ileus [Unknown]
  - Urinary tract infection [Unknown]
  - Postoperative wound infection [Unknown]
  - Gastrointestinal anastomotic leak [Unknown]
  - Drug ineffective [Unknown]
